FAERS Safety Report 7217395-6 (Version None)
Quarter: 2011Q1

REPORT INFORMATION
  Report Type: 
  Country: None (occurrence: None)
  Receive Date: 20110110
  Receipt Date: 20101228
  Transmission Date: 20110831
  Serious: Yes (Other)
  Sender: FDA-Public Use
  Company Number: PHHY2010JP88670

PATIENT
  Age: 44 Year
  Sex: Male

DRUGS (1)
  1. LOPRESSOR [Suspect]
     Dosage: THREE 20 MG TABLETS DAILY
     Route: 048

REACTIONS (2)
  - RETINAL DISORDER [None]
  - PALPITATIONS [None]
